FAERS Safety Report 7768527-2 (Version None)
Quarter: 2011Q3

REPORT INFORMATION
  Report Type: 
  Country: None (occurrence: None)
  Receive Date: 20110922
  Receipt Date: 20110603
  Transmission Date: 20111222
  Serious: No
  Sender: FDA-Public Use
  Company Number: US-ASTRAZENECA-2011SE34447

PATIENT
  Sex: Female

DRUGS (6)
  1. AMBIEN [Concomitant]
  2. GABAPENTIN [Concomitant]
  3. ZOLOFT [Concomitant]
  4. LITHIUM CARBONATE [Concomitant]
  5. SEROQUEL XR [Suspect]
     Route: 048
     Dates: start: 20090601, end: 20110301
  6. TRAZODONE HCL [Concomitant]

REACTIONS (2)
  - MALAISE [None]
  - DRUG DOSE OMISSION [None]
